FAERS Safety Report 15478995 (Version 1)
Quarter: 2018Q4

REPORT INFORMATION
  Report Type: Report from Study
  Country: GB (occurrence: GB)
  Receive Date: 20181009
  Receipt Date: 20181009
  Transmission Date: 20190205
  Serious: Yes (Hospitalization)
  Sender: FDA-Public Use
  Company Number: GB-JNJFOC-20180815900

PATIENT
  Age: 49 Year
  Sex: Female

DRUGS (3)
  1. CALCICHEW [Concomitant]
     Active Substance: CALCIUM CARBONATE
     Route: 065
  2. ESOMEPRAZOLE. [Concomitant]
     Active Substance: ESOMEPRAZOLE MAGNESIUM
     Route: 065
  3. STELARA [Suspect]
     Active Substance: USTEKINUMAB
     Indication: PSORIASIS
     Route: 058
     Dates: start: 2013

REACTIONS (3)
  - Hernia [Unknown]
  - Cholelithiasis [Unknown]
  - Psoriasis [Unknown]

NARRATIVE: CASE EVENT DATE: 201807
